FAERS Safety Report 5163145-7 (Version None)
Quarter: 2006Q4

REPORT INFORMATION
  Report Type: 
  Country: None (occurrence: None)
  Receive Date: 20061204
  Receipt Date: 20061121
  Transmission Date: 20070319
  Serious: Yes (Other)
  Sender: FDA-Public Use
  Company Number: GB-JNJFOC-20050802115

PATIENT
  Sex: Male

DRUGS (15)
  1. DURAGESIC-100 [Suspect]
     Route: 062
  2. DURAGESIC-100 [Suspect]
     Route: 062
  3. DURAGESIC-100 [Suspect]
     Route: 062
  4. DURAGESIC-100 [Suspect]
     Route: 062
  5. DURAGESIC-100 [Suspect]
     Route: 062
  6. DURAGESIC-100 [Suspect]
     Indication: PAIN
     Route: 062
  7. DURAGESIC-100 [Suspect]
     Indication: PAIN
     Route: 062
  8. ORAMORPH SR [Concomitant]
     Indication: BREAKTHROUGH PAIN
     Route: 065
  9. FLUOXETINE [Concomitant]
     Route: 065
  10. AMITRIPTYLINE HCL [Concomitant]
     Dosage: AT NIGHT
     Route: 065
  11. GABAPENTIN [Concomitant]
     Route: 065
  12. CYCLIZINE [Concomitant]
     Route: 065
  13. RANITIDINE [Concomitant]
     Route: 065
  14. PRAVASTATIN [Concomitant]
     Route: 065
  15. MORPHINE SUL INJ [Concomitant]

REACTIONS (15)
  - AGEUSIA [None]
  - ANOREXIA [None]
  - BOWEL MOVEMENT IRREGULARITY [None]
  - COLD SWEAT [None]
  - DEPRESSION [None]
  - DRUG INEFFECTIVE [None]
  - DRUG WITHDRAWAL SYNDROME [None]
  - FEAR [None]
  - GASTROINTESTINAL MOTILITY DISORDER [None]
  - LOSS OF LIBIDO [None]
  - MORBID THOUGHTS [None]
  - NAUSEA [None]
  - PHARMACEUTICAL PRODUCT COMPLAINT [None]
  - POLLAKIURIA [None]
  - SUICIDAL IDEATION [None]
